FAERS Safety Report 14213364 (Version 2)
Quarter: 2017Q4

REPORT INFORMATION
  Report Type: Spontaneous
  Country: TR (occurrence: TR)
  Receive Date: 20171122
  Receipt Date: 20171215
  Transmission Date: 20180321
  Serious: Yes (Hospitalization)
  Sender: FDA-Public Use
  Company Number: TR-PFIZER INC-2017501639

PATIENT
  Age: 25 Year
  Sex: Male

DRUGS (3)
  1. VALACYCLOVIR [Concomitant]
     Active Substance: VALACYCLOVIR HYDROCHLORIDE
     Indication: HERPES ZOSTER
     Dosage: 1 G, 3X/DAY
  2. SERTRALINE HCL [Suspect]
     Active Substance: SERTRALINE HYDROCHLORIDE
     Indication: DEPRESSION
     Dosage: 50 MG, DAILY (NEARLY THREE WEEKS)
  3. DEXPANTHENOL. [Concomitant]
     Active Substance: DEXPANTHENOL
     Indication: HERPES ZOSTER
     Dosage: UNK
     Route: 061

REACTIONS (1)
  - Fixed eruption [Recovered/Resolved]
